FAERS Safety Report 17168736 (Version 1)
Quarter: 2019Q4

REPORT INFORMATION
  Report Type: Spontaneous
  Country: NL (occurrence: NL)
  Receive Date: 20191218
  Receipt Date: 20191218
  Transmission Date: 20200122
  Serious: Yes (Hospitalization)
  Sender: FDA-Public Use
  Company Number: NL-ELI_LILLY_AND_COMPANY-NL201912004157

PATIENT
  Age: 71 Year
  Sex: Female

DRUGS (2)
  1. UPTRAVI [Concomitant]
     Active Substance: SELEXIPAG
     Indication: ANTICOAGULANT THERAPY
  2. ADCIRCA [Suspect]
     Active Substance: TADALAFIL
     Indication: PULMONARY HYPERTENSION
     Dosage: 20 MG, DAILY
     Route: 048

REACTIONS (6)
  - Fall [Unknown]
  - Faeces discoloured [Unknown]
  - Dizziness [Unknown]
  - Muscular weakness [Unknown]
  - Nausea [Unknown]
  - Haemoptysis [Unknown]
